FAERS Safety Report 16058162 (Version 1)
Quarter: 2019Q1

REPORT INFORMATION
  Report Type: Spontaneous
  Country: US (occurrence: US)
  Receive Date: 20190311
  Receipt Date: 20190311
  Transmission Date: 20190418
  Serious: Yes (Other)
  Sender: FDA-Public Use
  Company Number: US-ELI_LILLY_AND_COMPANY-US201903001590

PATIENT
  Sex: Male

DRUGS (2)
  1. HUMALOG [Suspect]
     Active Substance: INSULIN LISPRO
     Indication: TYPE 2 DIABETES MELLITUS
     Dosage: 14-23 IU, PER MEAL
     Route: 058
     Dates: start: 201810
  2. ASPIRIN 81 [Concomitant]
     Active Substance: ASPIRIN

REACTIONS (4)
  - Brain cancer metastatic [Not Recovered/Not Resolved]
  - Renal cancer stage IV [Not Recovered/Not Resolved]
  - Injection site bruising [Not Recovered/Not Resolved]
  - Injection site haemorrhage [Unknown]
